FAERS Safety Report 4938656-7 (Version None)
Quarter: 2006Q1

REPORT INFORMATION
  Report Type: 
  Country: None (occurrence: None)
  Receive Date: 20060113
  Receipt Date: 20050816
  Transmission Date: 20060701
  Serious: Yes (Other)
  Sender: FDA-Public Use
  Company Number: HQWYE229019JUL04

PATIENT
  Age: 70 Year
  Sex: Female
  Weight: 58.57 kg

DRUGS (4)
  1. PREMPRO [Suspect]
     Indication: HORMONE REPLACEMENT THERAPY
  2. PREMARIN [Suspect]
  3. PROVERA [Suspect]
  4. HYZAAR (HYDROCHLOROTHIAZIDE/LOSARTAN [Concomitant]

REACTIONS (1)
  - BREAST CANCER [None]
